FAERS Safety Report 12116597 (Version 1)
Quarter: 2016Q1

REPORT INFORMATION
  Report Type: Report from Study
  Country: BR (occurrence: BR)
  Receive Date: 20160225
  Receipt Date: 20160225
  Transmission Date: 20160526
  Serious: Yes (Hospitalization, Other)
  Sender: FDA-Public Use
  Company Number: PHHY2016BR024767

PATIENT
  Sex: Male
  Weight: 78 kg

DRUGS (1)
  1. DIOVAN AMLO FIX [Suspect]
     Active Substance: AMLODIPINE\VALSARTAN
     Indication: HYPERTENSION
     Dosage: 1 DF, QD
     Route: 048
     Dates: start: 2012

REACTIONS (7)
  - Lung neoplasm malignant [Recovered/Resolved]
  - Gastrointestinal carcinoma [Not Recovered/Not Resolved]
  - Prostate cancer [Recovered/Resolved]
  - Pulmonary mass [Unknown]
  - Pain [Unknown]
  - Nephrolithiasis [Unknown]
  - Bone cancer [Recovered/Resolved]
